FAERS Safety Report 24968422 (Version 1)
Quarter: 2025Q1

REPORT INFORMATION
  Report Type: Spontaneous
  Country: US (occurrence: US)
  Receive Date: 20250214
  Receipt Date: 20250214
  Transmission Date: 20250409
  Serious: No
  Sender: Kenvue
  Company Number: US-KENVUE-20250108157

PATIENT
  Age: 5 Decade
  Sex: Male

DRUGS (1)
  1. MENS ROGAINE EXTRA STRENGTH [Suspect]
     Active Substance: MINOXIDIL
     Indication: Alopecia
     Dosage: CAPFUL SIZE TWICE DAILY
     Route: 061
     Dates: start: 20241210

REACTIONS (3)
  - Application site irritation [Recovering/Resolving]
  - Application site pruritus [Recovering/Resolving]
  - Overdose [Unknown]

NARRATIVE: CASE EVENT DATE: 20241210
